FAERS Safety Report 8464339-5 (Version None)
Quarter: 2012Q2

REPORT INFORMATION
  Report Type: 
  Country: None (occurrence: None)
  Receive Date: 20120625
  Receipt Date: 20120613
  Transmission Date: 20120825
  Serious: Yes (Hospitalization)
  Sender: FDA-Public Use
  Company Number: US-BAYER-201021908GPV

PATIENT
  Age: 55 Year
  Sex: Male

DRUGS (6)
  1. MONTELUKAST [Suspect]
  2. SIMVASTATIN [Concomitant]
  3. ASPIRIN [Suspect]
     Indication: IMMUNE TOLERANCE INDUCTION
     Route: 048
  4. ASPIRIN [Suspect]
  5. OMEPRAZOLE [Concomitant]
  6. GLUCOSAMINE [Concomitant]

REACTIONS (3)
  - PANCREATITIS [None]
  - ALLERGIC RESPIRATORY DISEASE [None]
  - ABDOMINAL PAIN UPPER [None]
